FAERS Safety Report 6437341-2 (Version None)
Quarter: 2009Q4

REPORT INFORMATION
  Report Type: 
  Country: None (occurrence: None)
  Receive Date: 20091112
  Receipt Date: 20091002
  Transmission Date: 20100525
  Serious: No
  Sender: FDA-Public Use
  Company Number: US-BAYER-200935248NA

PATIENT
  Age: 36 Year
  Sex: Female
  Weight: 86 kg

DRUGS (1)
  1. MIRENA [Suspect]
     Indication: CONTRACEPTION
     Route: 015
     Dates: start: 20090803

REACTIONS (8)
  - ABDOMINAL PAIN [None]
  - DIZZINESS [None]
  - HEADACHE [None]
  - MEDICAL DEVICE COMPLICATION [None]
  - POLYMENORRHOEA [None]
  - POST PROCEDURAL HAEMORRHAGE [None]
  - PYREXIA [None]
  - VAGINAL DISCHARGE [None]
